FAERS Safety Report 4766330-9 (Version None)
Quarter: 2005Q3

REPORT INFORMATION
  Report Type: 
  Country: None (occurrence: None)
  Receive Date: 20050906
  Receipt Date: 20050823
  Transmission Date: 20060218
  Serious: Yes (Hospitalization)
  Sender: FDA-Public Use
  Company Number: USA041286993

PATIENT
  Age: 85 Year
  Sex: Male
  Weight: 74 kg

DRUGS (4)
  1. FORTEO [Suspect]
     Indication: OSTEOPOROSIS
     Dosage: 20 UG DAY
     Dates: start: 20041201
  2. OMEGA 3 (FISH OIL) [Concomitant]
  3. TESTOSTERONE [Concomitant]
  4. NITROGLYCERIN [Concomitant]

REACTIONS (21)
  - AMNESIA [None]
  - BACK PAIN [None]
  - BENIGN PROSTATIC HYPERPLASIA [None]
  - CHEST PAIN [None]
  - DECUBITUS ULCER [None]
  - DIABETES MELLITUS [None]
  - HYPERHIDROSIS [None]
  - HYPERLIPIDAEMIA [None]
  - HYPERTENSION [None]
  - INJECTION SITE ERYTHEMA [None]
  - INJECTION SITE HAEMORRHAGE [None]
  - INJECTION SITE PAIN [None]
  - IRON DEFICIENCY ANAEMIA [None]
  - KYPHOSIS [None]
  - NOCTURIA [None]
  - PAIN [None]
  - PAIN IN EXTREMITY [None]
  - PALPITATIONS [None]
  - PHARMACEUTICAL PRODUCT COMPLAINT [None]
  - SCOLIOSIS [None]
  - URINARY RETENTION [None]
